FAERS Safety Report 6448831-0 (Version None)
Quarter: 2009Q4

REPORT INFORMATION
  Report Type: 
  Country: None (occurrence: None)
  Receive Date: 20091120
  Receipt Date: 20091028
  Transmission Date: 20100525
  Serious: Yes (Other)
  Sender: FDA-Public Use
  Company Number: JP-SANOFI-AVENTIS-A01200910734

PATIENT
  Age: 71 Year
  Sex: Male
  Weight: 68 kg

DRUGS (5)
  1. ZOLPIDEM TARTRATE [Suspect]
     Indication: INSOMNIA
     Dosage: UNIT DOSE: 10 MG
     Route: 048
     Dates: start: 20090914, end: 20090916
  2. MICARDIS [Suspect]
     Indication: HYPERTENSION
     Route: 048
     Dates: start: 20090914, end: 20090916
  3. PIOGLITAZONE HYDROCHLORIDE [Concomitant]
     Indication: DIABETES MELLITUS
     Route: 048
     Dates: start: 20090126
  4. PAXIL [Concomitant]
     Indication: DEPRESSION
     Route: 048
  5. SEPAZON [Concomitant]
     Indication: DEPRESSION
     Route: 048

REACTIONS (3)
  - DRUG INEFFECTIVE [None]
  - LOSS OF CONSCIOUSNESS [None]
  - ROAD TRAFFIC ACCIDENT [None]
